FAERS Safety Report 10331888 (Version 2)
Quarter: 2014Q3

REPORT INFORMATION
  Report Type: Spontaneous
  Country: US (occurrence: US)
  Receive Date: 20140722
  Receipt Date: 20140817
  Transmission Date: 20150326
  Serious: Yes (Death, Hospitalization)
  Sender: FDA-Public Use
  Company Number: US-AMGEN INC.-USASP2014054125

PATIENT
  Age: 89 Year
  Sex: Female
  Weight: 45.81 kg

DRUGS (1)
  1. PROLIA [Suspect]
     Active Substance: DENOSUMAB
     Indication: OSTEOPOROSIS POSTMENOPAUSAL
     Dosage: 60 MG, Q6MO
     Route: 058
     Dates: start: 20130319

REACTIONS (2)
  - Chronic obstructive pulmonary disease [Fatal]
  - Hip fracture [Unknown]

NARRATIVE: CASE EVENT DATE: 201310
